FAERS Safety Report 14983214 (Version 1)
Quarter: 2018Q2

REPORT INFORMATION
  Report Type: Spontaneous
  Country: US (occurrence: US)
  Receive Date: 20180607
  Receipt Date: 20180607
  Transmission Date: 20180711
  Serious: No
  Sender: FDA-Public Use
  Company Number: US-JNJFOC-20180520015

PATIENT
  Age: 76 Year
  Sex: Female
  Weight: 59.88 kg

DRUGS (8)
  1. NIZORAL A-D [Suspect]
     Active Substance: KETOCONAZOLE
     Indication: PRURITUS
     Route: 061
  2. ESTRADIOL/NORETHINDRONE [Concomitant]
     Active Substance: ESTRADIOL\NORETHINDRONE
     Indication: HORMONE REPLACEMENT THERAPY
     Route: 065
  3. VITAMIN D [Concomitant]
     Active Substance: CHOLECALCIFEROL
     Indication: ROUTINE HEALTH MAINTENANCE
     Route: 065
  4. ROGAINE [Concomitant]
     Active Substance: MINOXIDIL
     Dosage: SOMETIMES ONCE DAILY
     Route: 065
     Dates: start: 1989
  5. RANITIDINE HYDROCHLORIDE. [Concomitant]
     Active Substance: RANITIDINE HYDROCHLORIDE
     Indication: GASTROOESOPHAGEAL REFLUX DISEASE
     Dosage: 150MG IN THE MORNING, 300MG AT NIGHT
     Route: 065
  6. ROGAINE [Concomitant]
     Active Substance: MINOXIDIL
     Route: 065
  7. NIZORAL A-D [Suspect]
     Active Substance: KETOCONAZOLE
     Route: 061
  8. ALIGN [Concomitant]
     Active Substance: BIFIDOBACTERIUM LONGUM SUBSP. INFANTIS
     Indication: ROUTINE HEALTH MAINTENANCE
     Route: 065

REACTIONS (2)
  - Palpitations [Not Recovered/Not Resolved]
  - Expired product administered [Unknown]
